FAERS Safety Report 8953258 (Version 2)
Quarter: 2013Q1

REPORT INFORMATION
  Report Type: Spontaneous
  Country: US (occurrence: US)
  Receive Date: 20121206
  Receipt Date: 20130115
  Transmission Date: 20140127
  Serious: Yes (Hospitalization, Other)
  Sender: FDA-Public Use
  Company Number: US-AMGEN-USASP2012077019

PATIENT
  Age: 64 Year
  Sex: Female
  Weight: 82.99 kg

DRUGS (4)
  1. ENBREL [Suspect]
     Indication: PSORIATIC ARTHROPATHY
     Dosage: 50 MG, QWK
     Route: 058
     Dates: start: 201111, end: 201204
  2. NEUROTIN                           /00949202/ [Concomitant]
     Dosage: 300MG/1 TAB/3 TIMES DAILY
  3. METHOTREXATE [Concomitant]
     Indication: PSORIATIC ARTHROPATHY
     Dosage: 2.5MG/4 TABS/ONCE WEEKLY
     Route: 048
     Dates: start: 201108
  4. ARTHROTEC [Concomitant]
     Dosage: 50MG/200MCG/1 TAB/TWICE DAILY

REACTIONS (6)
  - Endometrial cancer [Recovered/Resolved]
  - Pain [Not Recovered/Not Resolved]
  - Swelling [Not Recovered/Not Resolved]
  - Skin plaque [Not Recovered/Not Resolved]
  - Erythema [Not Recovered/Not Resolved]
  - Vitamin D decreased [Not Recovered/Not Resolved]
